FAERS Safety Report 22399925 (Version 7)
Quarter: 2024Q1

REPORT INFORMATION
  Report Type: Spontaneous
  Country: US (occurrence: US)
  Receive Date: 20230602
  Receipt Date: 20240129
  Transmission Date: 20240409
  Serious: Yes (Hospitalization, Other)
  Sender: FDA-Public Use
  Company Number: US-PFIZER INC-PV202300097061

PATIENT
  Age: 90 Year
  Sex: Female

DRUGS (3)
  1. IBRANCE [Suspect]
     Active Substance: PALBOCICLIB
     Indication: Breast cancer metastatic
     Dosage: 75 MG
     Route: 048
  2. IBRANCE [Suspect]
     Active Substance: PALBOCICLIB
     Dosage: 1 TAB ORALLY ONCE A DAY FOR 7 DAYS, THEN STOP FOR 7 DAYS/ 7 DAYS ON, 7 DAYS OFF)
     Route: 048
  3. IBRANCE [Suspect]
     Active Substance: PALBOCICLIB
     Dosage: TAKES IT FOR 1 WEEK ON 1 WEEK OFF NOW AND HAS FOR MONTHS
     Route: 048

REACTIONS (2)
  - Clostridium difficile infection [Unknown]
  - Off label use [Unknown]
